FAERS Safety Report 7318027-9 (Version None)
Quarter: 2011Q1

REPORT INFORMATION
  Report Type: 
  Country: None (occurrence: None)
  Receive Date: 20110227
  Receipt Date: 20110216
  Transmission Date: 20110831
  Serious: Yes (Hospitalization)
  Sender: FDA-Public Use
  Company Number: TH-BRISTOL-MYERS SQUIBB COMPANY-15569544

PATIENT
  Age: 66 Year
  Sex: Female

DRUGS (1)
  1. IXEMPRA KIT [Suspect]
     Indication: BREAST CANCER METASTATIC
     Dosage: DOSE REDUCED
     Route: 042
     Dates: start: 20090929, end: 20091027

REACTIONS (2)
  - DECREASED APPETITE [None]
  - ELECTROLYTE IMBALANCE [None]
